FAERS Safety Report 9967907 (Version 1)
Quarter: 2014Q1

REPORT INFORMATION
  Report Type: Report from Study
  Country: US (occurrence: US)
  Receive Date: 20140306
  Receipt Date: 20140306
  Transmission Date: 20141002
  Serious: No
  Sender: FDA-Public Use
  Company Number: US-ABBVIE-13P-163-1139846-00

PATIENT
  Age: 71 Year
  Sex: Male

DRUGS (6)
  1. HUMIRA [Suspect]
     Indication: COLITIS ULCERATIVE
     Dates: start: 20130617, end: 20130812
  2. BUSPIRONE [Concomitant]
     Indication: ANXIETY
  3. TRAZODONE [Concomitant]
     Indication: SLEEP DISORDER THERAPY
     Dosage: AT HOUR OF SLEEP
  4. LORAZEPAM [Concomitant]
     Indication: ANXIETY
  5. VITAMIN D [Concomitant]
     Indication: PRODUCT USED FOR UNKNOWN INDICATION
     Dates: end: 201307
  6. VITAMIN D [Concomitant]
     Indication: PRODUCT USED FOR UNKNOWN INDICATION
     Dates: end: 201306

REACTIONS (4)
  - Malaise [Unknown]
  - Hypersensitivity [Not Recovered/Not Resolved]
  - Lip swelling [Not Recovered/Not Resolved]
  - Abdominal discomfort [Not Recovered/Not Resolved]
